FAERS Safety Report 13085522 (Version 7)
Quarter: 2017Q2

REPORT INFORMATION
  Report Type: Spontaneous
  Country: US (occurrence: US)
  Receive Date: 20170104
  Receipt Date: 20170524
  Transmission Date: 20170830
  Serious: No
  Sender: FDA-Public Use
  Company Number: US-PFIZER INC-2016603099

PATIENT
  Age: 65 Year
  Sex: Female

DRUGS (13)
  1. XELJANZ [Suspect]
     Active Substance: TOFACITINIB CITRATE
     Indication: RHEUMATOID ARTHRITIS
     Dosage: 5 MG, UNK
  2. METHOTREXATE SODIUM. [Suspect]
     Active Substance: METHOTREXATE SODIUM
     Indication: RHEUMATOID ARTHRITIS
     Dosage: 1 ML, WEEKLY
     Route: 030
     Dates: start: 2009
  3. HYDROXYCHLOROQUINE [Suspect]
     Active Substance: HYDROXYCHLOROQUINE
     Dosage: 300 MG, DAILY [200 MG AM, 100 MG PM]
     Dates: start: 2009
  4. FOLIC ACID. [Suspect]
     Active Substance: FOLIC ACID
     Dosage: 7 MG, 1X/DAY (AM)
     Dates: start: 2009
  5. VITAMIN D3 [Suspect]
     Active Substance: CHOLECALCIFEROL
     Indication: RHEUMATOID ARTHRITIS
     Dosage: 1000 IU, DAILY (1 DF, DAILY, AM)
     Dates: start: 2009
  6. XELJANZ [Suspect]
     Active Substance: TOFACITINIB CITRATE
     Dosage: UNK
     Dates: start: 20131219
  7. HYDROXYCHLOROQUINE [Suspect]
     Active Substance: HYDROXYCHLOROQUINE
     Indication: RHEUMATOID ARTHRITIS
     Dosage: 200 MG, 2X/DAY (1 AM 1 PM)
     Dates: start: 2009
  8. XELJANZ [Suspect]
     Active Substance: TOFACITINIB CITRATE
     Dosage: 5 MG, 2X/DAY (AM, PM)
     Dates: start: 2014
  9. VITAMIN D3 [Suspect]
     Active Substance: CHOLECALCIFEROL
     Dosage: UNK (1000 TAB AM)
     Dates: start: 2009
  10. METHOTREXATE SODIUM. [Suspect]
     Active Substance: METHOTREXATE SODIUM
     Dosage: UNK, WEEKLY (0.7 CC WEEKLY)
     Route: 030
     Dates: start: 2009
  11. FOLIC ACID. [Suspect]
     Active Substance: FOLIC ACID
     Dosage: UNK, 1X/DAY (GREATER THAN 1MG)
     Dates: start: 2009
  12. XELJANZ [Suspect]
     Active Substance: TOFACITINIB CITRATE
     Dosage: 1.5 MG, 2X/DAY
     Dates: start: 201403
  13. FOLIC ACID. [Suspect]
     Active Substance: FOLIC ACID
     Indication: RHEUMATOID ARTHRITIS
     Dosage: 1 MG, DAILY (6 DAILY 6 DAYS)
     Dates: start: 2009

REACTIONS (3)
  - Condition aggravated [Unknown]
  - Malaise [Recovered/Resolved]
  - Stress [Unknown]
